FAERS Safety Report 24098136 (Version 12)
Quarter: 2024Q4

REPORT INFORMATION
  Report Type: Other
  Country: US (occurrence: US)
  Receive Date: 20240716
  Receipt Date: 20241109
  Transmission Date: 20250115
  Serious: Yes (Other)
  Sender: TRAVERE THERAPEUTICS
  Company Number: US-TRAVERE-2024TVT00573

PATIENT
  Age: 21 Year
  Sex: Female

DRUGS (9)
  1. FILSPARI [Suspect]
     Active Substance: SPARSENTAN
     Indication: IgA nephropathy
     Dosage: FIRST SHIP DATE FROM ACCREDO: 08-MAY-2024
     Route: 048
     Dates: start: 202403
  2. FILSPARI [Suspect]
     Active Substance: SPARSENTAN
     Indication: Haematuria
     Route: 048
     Dates: start: 202403
  3. FILSPARI [Suspect]
     Active Substance: SPARSENTAN
     Route: 048
     Dates: start: 20240909
  4. FILSPARI [Suspect]
     Active Substance: SPARSENTAN
     Dosage: PATIENT DID NOT TAKE HER FILSPARI THAT DAY
     Route: 048
     Dates: start: 202409, end: 20241027
  5. ZOLOFT [Suspect]
     Active Substance: SERTRALINE HYDROCHLORIDE
     Indication: Product used for unknown indication
  6. IBUPROFEN [Concomitant]
     Active Substance: IBUPROFEN
  7. FISH OIL [Concomitant]
     Active Substance: FISH OIL
  8. VITAMINS NOS [Concomitant]
     Active Substance: VITAMINS
  9. ACETAMINOPHEN [Concomitant]
     Active Substance: ACETAMINOPHEN

REACTIONS (15)
  - Syncope [Unknown]
  - Hypotension [Recovered/Resolved]
  - Dizziness [None]
  - Hypotension [Unknown]
  - Dyspnoea [Recovered/Resolved]
  - Malaise [Unknown]
  - Headache [None]
  - Sleep disorder [Unknown]
  - Anxiety [Unknown]
  - Feeling abnormal [None]
  - Fatigue [Unknown]
  - Pallor [Unknown]
  - Nervousness [Unknown]
  - Nausea [Unknown]
  - Migraine [Unknown]

NARRATIVE: CASE EVENT DATE: 20240501
